FAERS Safety Report 4494860-6 (Version None)
Quarter: 2004Q4

REPORT INFORMATION
  Report Type: 
  Country: None (occurrence: None)
  Receive Date: 20041103
  Receipt Date: 20041025
  Transmission Date: 20050328
  Serious: Yes (Death, Hospitalization)
  Sender: FDA-Public Use
  Company Number: 163-20785-04070456

PATIENT
  Age: 69 Year
  Sex: Male

DRUGS (1)
  1. THALOMID [Suspect]
     Indication: MULTIPLE MYELOMA
     Dosage: 50 MG, DAILY, ORAL
     Route: 048
     Dates: start: 20030930, end: 20040101

REACTIONS (8)
  - CARDIAC DISORDER [None]
  - CARDIOMEGALY [None]
  - CATHETER RELATED INFECTION [None]
  - CHEST PAIN [None]
  - FAILURE TO THRIVE [None]
  - MEDICAL DEVICE COMPLICATION [None]
  - PULMONARY CONGESTION [None]
  - SEPSIS [None]
